FAERS Safety Report 9768262 (Version 1)
Quarter: 2013Q4

REPORT INFORMATION
  Report Type: Report from Study
  Country: US (occurrence: US)
  Receive Date: 20131217
  Receipt Date: 20131217
  Transmission Date: 20140711
  Serious: Yes (Other)
  Sender: FDA-Public Use
  Company Number: US-PURDUE-USA-2013-0109501

PATIENT
  Sex: Female

DRUGS (2)
  1. OXY CR TAB [Suspect]
     Indication: INTERVERTEBRAL DISC DISORDER
     Dosage: UNK
     Route: 048
     Dates: start: 20051110
  2. OXY CR TAB [Suspect]
     Dosage: 40 MG 2 TABLETS IN THE A.M, 1 TABLET AT LUNCH  AND 2 TABLETS AT BEDTIME
     Route: 048
     Dates: start: 2012

REACTIONS (1)
  - Abdominal hernia [Recovered/Resolved]
